FAERS Safety Report 21722780 (Version 1)
Quarter: 2022Q4

REPORT INFORMATION
  Report Type: Spontaneous
  Country: US (occurrence: None)
  Receive Date: 20221212
  Receipt Date: 20221212
  Transmission Date: 20230112
  Serious: No
  Sender: FDA-Public Use
  Company Number: None

PATIENT
  Age: 55 Year
  Sex: Female

DRUGS (1)
  1. DUPIXENT [Suspect]
     Active Substance: DUPILUMAB
     Indication: Dermatitis atopic
     Dosage: OTHER FREQUENCY : BI-WEEKLY;?
     Route: 058
     Dates: start: 20211220, end: 20221017

REACTIONS (3)
  - Therapy cessation [None]
  - Rash [None]
  - Herpes simplex test positive [None]

NARRATIVE: CASE EVENT DATE: 20221212
